FAERS Safety Report 5905678-9 (Version None)
Quarter: 2008Q4

REPORT INFORMATION
  Report Type: 
  Country: None (occurrence: None)
  Receive Date: 20081001
  Receipt Date: 20081001
  Transmission Date: 20090506
  Serious: No
  Sender: FDA-Public Use
  Company Number: None

PATIENT
  Age: 84 Year
  Sex: Male

DRUGS (1)
  1. CYCLOBENZAPRINE HCL [Suspect]
     Dosage: 5 MG TID SQ
     Route: 058
     Dates: start: 20080610

REACTIONS (2)
  - FALL [None]
  - HALLUCINATION [None]
